FAERS Safety Report 10620432 (Version 1)
Quarter: 2014Q4

REPORT INFORMATION
  Report Type: Spontaneous
  Country: JP (occurrence: JP)
  Receive Date: 20141202
  Receipt Date: 20141202
  Transmission Date: 20150529
  Serious: Yes (Hospitalization)
  Sender: FDA-Public Use
  Company Number: JP-009507513-1412JPN000194

PATIENT
  Age: 85 Year
  Sex: Female

DRUGS (4)
  1. MENESIT TABLETS - 100 [Suspect]
     Active Substance: CARBIDOPA\LEVODOPA
     Dosage: DAILY DOSAGE UNKNOWN
     Route: 048
  2. MIRAPEX [Concomitant]
     Active Substance: PRAMIPEXOLE DIHYDROCHLORIDE
     Dosage: DAILY DOSAGE UNKNOWN
  3. MAGNESIUM OXIDE. [Concomitant]
     Active Substance: MAGNESIUM OXIDE
     Dosage: DAILY DOSAGE UNKNOWN
  4. CEROCRAL [Concomitant]
     Active Substance: IFENPRODIL
     Dosage: DAILY DOSAGE UNKNOWN

REACTIONS (2)
  - Oral mucosal discolouration [Unknown]
  - Adverse event [Unknown]
